FAERS Safety Report 6983264-X (Version None)
Quarter: 2010Q3

REPORT INFORMATION
  Report Type: 
  Country: None (occurrence: None)
  Receive Date: 20100914
  Receipt Date: 20100706
  Transmission Date: 20110219
  Serious: No
  Sender: FDA-Public Use
  Company Number: US-PFIZER INC-2010084337

PATIENT
  Sex: Female
  Weight: 72.562 kg

DRUGS (1)
  1. LYRICA [Suspect]
     Indication: CEREBRAL PALSY
     Dosage: 75 MG, 2X/DAY
     Route: 048

REACTIONS (4)
  - DRUG INEFFECTIVE [None]
  - FEELING ABNORMAL [None]
  - IMPAIRED WORK ABILITY [None]
  - WEIGHT INCREASED [None]
